FAERS Safety Report 9542371 (Version 1)
Quarter: 2013Q3

REPORT INFORMATION
  Report Type: Spontaneous
  Country: FR (occurrence: FR)
  Receive Date: 20130923
  Receipt Date: 20130923
  Transmission Date: 20140515
  Serious: Yes (Hospitalization)
  Sender: FDA-Public Use
  Company Number: FR-MYLANLABS-2013S1020206

PATIENT
  Age: 63 Year
  Sex: Female

DRUGS (4)
  1. BUSPIRONE [Suspect]
     Indication: DEPRESSION
     Route: 048
     Dates: start: 201302, end: 201307
  2. CITALOPRAM [Suspect]
     Indication: DEPRESSION
     Route: 048
     Dates: start: 201302, end: 201307
  3. VISKEN [Concomitant]
     Indication: DEPRESSION
     Dates: start: 1989
  4. LIPANOR [Concomitant]
     Indication: HYPERCHOLESTEROLAEMIA
     Dates: start: 1989

REACTIONS (1)
  - Tonic clonic movements [Recovered/Resolved]
